FAERS Safety Report 23293011 (Version 1)
Quarter: 2023Q4

REPORT INFORMATION
  Report Type: Spontaneous
  Country: DE (occurrence: DE)
  Receive Date: 20231213
  Receipt Date: 20231213
  Transmission Date: 20240109
  Serious: Yes (Other)
  Sender: FDA-Public Use
  Company Number: DE-PFIZER INC-202300435329

PATIENT
  Sex: Male

DRUGS (1)
  1. AZULFIDINE [Suspect]
     Active Substance: SULFASALAZINE
     Indication: Rheumatoid arthritis
     Dosage: 2 TABLETS IN THE MORNING AND 2 TABLETS IN THE EVENING
     Dates: start: 2023

REACTIONS (4)
  - Suicidal ideation [Unknown]
  - Abnormal faeces [Unknown]
  - Chromaturia [Unknown]
  - Discomfort [Unknown]
